FAERS Safety Report 12031126 (Version 1)
Quarter: 2016Q1

REPORT INFORMATION
  Report Type: Report from Study
  Country: US (occurrence: US)
  Receive Date: 20160207
  Receipt Date: 20160207
  Transmission Date: 20160526
  Serious: No
  Sender: FDA-Public Use
  Company Number: US-ABBVIE-15K-163-1507659-00

PATIENT
  Age: 59 Year
  Sex: Male

DRUGS (3)
  1. HUMIRA [Suspect]
     Active Substance: ADALIMUMAB
     Route: 058
     Dates: start: 20151015
  2. HUMIRA [Suspect]
     Active Substance: ADALIMUMAB
     Indication: PSORIASIS
     Route: 058
     Dates: start: 20150924, end: 20150924
  3. HUMIRA [Suspect]
     Active Substance: ADALIMUMAB
     Route: 058
     Dates: start: 20151001, end: 20151001

REACTIONS (5)
  - Injection site erythema [Unknown]
  - Injection site erythema [Unknown]
  - Psoriasis [Not Recovered/Not Resolved]
  - Injection site induration [Unknown]
  - Injection site induration [Unknown]

NARRATIVE: CASE EVENT DATE: 20150924
